FAERS Safety Report 7517008-X (Version None)
Quarter: 2011Q2

REPORT INFORMATION
  Report Type: 
  Country: None (occurrence: None)
  Receive Date: 20110601
  Receipt Date: 20110523
  Transmission Date: 20111010
  Serious: Yes (Death, Hospitalization)
  Sender: FDA-Public Use
  Company Number: DE-ALEXION-A201100724

PATIENT
  Sex: Male

DRUGS (24)
  1. TORSEMIDE [Concomitant]
     Indication: HYPERTENSION
     Dosage: 10 MG QD
     Route: 048
     Dates: start: 20101010
  2. TAMSULOSIN HCL [Concomitant]
     Indication: PROSTATIC ADENOMA
     Dosage: 0.4 MG QD
     Dates: start: 20101010
  3. AMPHOTERICIN B [Concomitant]
     Indication: ANTIFUNGAL TREATMENT
     Dosage: UNK QID
     Dates: start: 20101010
  4. ASPIRIN [Concomitant]
     Indication: THROMBOSIS PROPHYLAXIS
     Dosage: 100 MG QD
     Route: 048
     Dates: start: 20090501
  5. PANTOPRAZOLE [Concomitant]
     Indication: GASTRITIS
     Dosage: 40 MG QD
     Route: 048
     Dates: start: 20090501
  6. MITOMYCIN [Concomitant]
     Indication: NON-SMALL CELL LUNG CANCER
     Dosage: 10 MG/M2, D1+D8 UNK
     Route: 042
     Dates: start: 20100921, end: 20101001
  7. LEVOFLOXACIN [Concomitant]
     Indication: PROPHYLAXIS
     Dosage: 500 MG QD
     Route: 048
     Dates: start: 20101010
  8. VINORELBINE [Concomitant]
     Indication: NON-SMALL CELL LUNG CANCER
     Dosage: 30 MG/M2, D1+D8 UNK
     Route: 042
     Dates: start: 20100921, end: 20101001
  9. NOVALGIN [Concomitant]
     Indication: PAIN
     Dosage: 20GTT QID
     Route: 048
     Dates: start: 20101010
  10. ZOMETA [Concomitant]
     Indication: METASTASES TO BONE
     Dosage: 4 MG Q 4-6 WEEKS
     Route: 042
     Dates: start: 20101010
  11. ERGOCALCIFEROL [Concomitant]
     Indication: OSTEOPOROSIS PROPHYLAXIS
     Dosage: 1000 IE QD
     Route: 048
     Dates: start: 20101010
  12. ALLOPURINOL [Concomitant]
     Indication: HYPERURICAEMIA
     Dosage: 100 MG QD
     Route: 048
     Dates: start: 20101010
  13. MAGNESIUM VERLA [Concomitant]
     Indication: RENAL FAILURE
     Dosage: UNK QD
     Route: 048
     Dates: start: 20101010
  14. DURAGESIC-100 [Concomitant]
     Indication: PAIN
     Dosage: 25 UG QH EVERY 3 DAYS
     Route: 062
     Dates: start: 20101010
  15. METOCLOPRAMIDE [Concomitant]
     Indication: VOMITING
     Dosage: 4X36 GGT/D
     Route: 048
     Dates: start: 20101010
  16. CALCIUM CARBONATE [Concomitant]
     Indication: OSTEOPOROSIS PROPHYLAXIS
     Dosage: UNK BID
     Dates: start: 20101010
  17. SOLIRIS [Suspect]
     Indication: PAROXYSMAL NOCTURNAL HAEMOGLOBINURIA
     Dosage: 600 MG, UNK
     Route: 042
     Dates: start: 20100204, end: 20100225
  18. PREDNISOLONE [Concomitant]
     Indication: HAEMOLYSIS
     Dosage: 5 MG QD
     Dates: start: 20090401
  19. AVELOX [Concomitant]
     Dosage: 400 MG UNK
     Route: 048
     Dates: start: 20101020
  20. SOLIRIS [Suspect]
     Dosage: 900 MG, UNK
     Route: 042
     Dates: start: 20100304, end: 20100415
  21. SEVREDOL [Concomitant]
     Dosage: 10 MG PRN
     Route: 048
     Dates: start: 20101101
  22. ANAGRELIDE HYDROCHLORIDE [Concomitant]
     Indication: THROMBOCYTOPENIA
     Dosage: 0.5 MG QD
     Route: 048
     Dates: start: 20080201
  23. MOVIPREP [Concomitant]
     Indication: CONSTIPATION
     Dosage: UNK PRN
     Route: 048
     Dates: start: 20101010
  24. ONDANSETRON [Concomitant]
     Dosage: 5 MG PRN
     Dates: start: 20101101

REACTIONS (4)
  - METASTASES TO LIVER [None]
  - NON-SMALL CELL LUNG CANCER [None]
  - METASTASES TO LUNG [None]
  - METASTASES TO BONE [None]
